FAERS Safety Report 22049621 (Version 2)
Quarter: 2023Q2

REPORT INFORMATION
  Report Type: Spontaneous
  Country: FR (occurrence: FR)
  Receive Date: 20230301
  Receipt Date: 20230410
  Transmission Date: 20230721
  Serious: Yes (Death)
  Sender: FDA-Public Use
  Company Number: FR-BAYER-2023A025611

PATIENT
  Age: 72 Year
  Sex: Male

DRUGS (1)
  1. VITRAKVI [Suspect]
     Active Substance: LAROTRECTINIB
     Indication: Thyroid cancer
     Dosage: UNK

REACTIONS (1)
  - Thyroid neoplasm [Fatal]

NARRATIVE: CASE EVENT DATE: 20220927
